FAERS Safety Report 5131612-8 (Version None)
Quarter: 2006Q4

REPORT INFORMATION
  Report Type: 
  Country: None (occurrence: None)
  Receive Date: 20061016
  Receipt Date: 20061005
  Transmission Date: 20070319
  Serious: Yes (Death, Life-Threatening)
  Sender: FDA-Public Use
  Company Number: HQWYE784503AUG06

PATIENT
  Age: 78 Year
  Sex: Female

DRUGS (7)
  1. MYLOTARG [Suspect]
     Indication: ACUTE MYELOID LEUKAEMIA RECURRENT
     Dosage: 9 MG/M^2 1X PER 1 DAY; INTRAVENOUS DRIP
     Route: 041
     Dates: start: 20060606, end: 20060606
  2. CYTARABINE [Suspect]
     Indication: ACUTE MYELOID LEUKAEMIA
  3. URSO 250 [Concomitant]
  4. OMEPRAZOLE [Concomitant]
  5. SULFAMETHOXAZOLE + TRIMETHOPRIM [Concomitant]
  6. DIFLUCAN [Concomitant]
  7. STRONG NEO-MINOPHAGEN C (AMINOACETIC ACID/CYSTEINE/GLYCYRRHIZIC ACID) [Concomitant]

REACTIONS (4)
  - CONDITION AGGRAVATED [None]
  - FEBRILE NEUTROPENIA [None]
  - PNEUMONIA [None]
  - SEPSIS [None]
